FAERS Safety Report 19655775 (Version 1)
Quarter: 2021Q3

REPORT INFORMATION
  Report Type: Spontaneous
  Country: US (occurrence: US)
  Receive Date: 20210802
  Receipt Date: 20210802
  Transmission Date: 20211014
  Serious: Yes (Hospitalization)
  Sender: FDA-Public Use
  Company Number: None

PATIENT
  Age: 57 Year
  Sex: Female

DRUGS (2)
  1. OPSUMIT [Suspect]
     Active Substance: MACITENTAN
     Indication: HERITABLE PULMONARY ARTERIAL HYPERTENSION
     Route: 048
     Dates: start: 20170301
  2. OPSUMIT [Suspect]
     Active Substance: MACITENTAN
     Indication: PULMONARY ARTERIAL HYPERTENSION
     Route: 048
     Dates: start: 20170301

REACTIONS (10)
  - Resorption bone increased [None]
  - Cough [None]
  - Spinal cord compression [None]
  - Pathological fracture [None]
  - Plasma cell myeloma [None]
  - Disease complication [None]
  - Dyspnoea [None]
  - Pneumonia bacterial [None]
  - Aspiration [None]
  - Hypoxia [None]

NARRATIVE: CASE EVENT DATE: 20210801
